FAERS Safety Report 6339139-2 (Version None)
Quarter: 2009Q3

REPORT INFORMATION
  Report Type: 
  Country: None (occurrence: None)
  Receive Date: 20090903
  Receipt Date: 20090826
  Transmission Date: 20100115
  Serious: Yes (Hospitalization, Other)
  Sender: FDA-Public Use
  Company Number: US-WYE-H10734909

PATIENT
  Sex: Male
  Weight: 86.26 kg

DRUGS (7)
  1. PRISTIQ [Suspect]
     Indication: DEPRESSION
     Dosage: UNKNOWN
     Dates: start: 20090627, end: 20090803
  2. PRISTIQ [Suspect]
     Route: 048
     Dates: start: 20090804, end: 20090812
  3. PRISTIQ [Suspect]
     Route: 048
     Dates: start: 20090813, end: 20090817
  4. LEVOTHROID [Concomitant]
  5. METOPROLOL [Concomitant]
  6. PRILOSEC [Concomitant]
  7. CRESTOR [Concomitant]

REACTIONS (6)
  - ANXIETY [None]
  - CHEST PAIN [None]
  - CORONARY ARTERIAL STENT INSERTION [None]
  - DRUG WITHDRAWAL SYNDROME [None]
  - NAUSEA [None]
  - PANIC ATTACK [None]
